FAERS Safety Report 22321903 (Version 1)
Quarter: 2023Q2

REPORT INFORMATION
  Report Type: Spontaneous
  Country: FR (occurrence: FR)
  Receive Date: 20230516
  Receipt Date: 20230516
  Transmission Date: 20230722
  Serious: Yes (Other)
  Sender: FDA-Public Use
  Company Number: FR-AFSSAPS-LY2023000634

PATIENT
  Age: 55 Year
  Sex: Male
  Weight: 71 kg

DRUGS (7)
  1. CLOZAPINE [Suspect]
     Active Substance: CLOZAPINE
     Indication: Product used for unknown indication
     Dosage: 300 MILLIGRAM (TOTAL)(3 COMPRIM?S DE 100 MG)(3 TABLETS OF 100MG)
     Route: 048
     Dates: start: 20230328, end: 20230328
  2. MELATONIN [Concomitant]
     Active Substance: MELATONIN
     Indication: Product used for unknown indication
     Dosage: 2 MILLIGRAM, ONCE A DAY (LE SOIR)(THE EVENING)
     Route: 048
     Dates: start: 20220902
  3. VALPROATE SODIUM [Concomitant]
     Active Substance: VALPROATE SODIUM
     Indication: Product used for unknown indication
     Dosage: 1200 MILLIGRAM, ONCE A DAY(2 COMPRIM?S LE MATIN, 1 ? MIDI ET 3 LE SOIR)(2 TABLETS IN THE MORNING, 1
     Route: 048
     Dates: start: 20210902
  4. POLYETHYLENE GLYCOL 4000 [Concomitant]
     Active Substance: POLYETHYLENE GLYCOL 4000
     Indication: Product used for unknown indication
     Dosage: 2 DOSAGE FORM, ONCE A DAY(LE MATIN)(THE MORNING)
     Route: 048
  5. MIRTAZAPINE [Concomitant]
     Active Substance: MIRTAZAPINE
     Indication: Product used for unknown indication
     Dosage: 30 MILLIGRAM, ONCE A DAY(2 COMPRIM?S LE SOIR)(2 TABLETS IN THE EVENING)
     Route: 048
     Dates: start: 20220902
  6. CYAMEMAZINE [Concomitant]
     Active Substance: CYAMEMAZINE
     Indication: Product used for unknown indication
     Dosage: 50 MILLIGRAM, ONCE A DAY(2 COMPRIM?S LE SOIR)(2 TABLETS IN THE EVENING)
     Route: 048
     Dates: start: 20210902
  7. TRIMEPRAZINE [Concomitant]
     Active Substance: TRIMEPRAZINE
     Indication: Product used for unknown indication
     Dosage: M?DICAMENT NON ADMINISTR?(MEDICATION NOT ADMINISTERED)
     Route: 048

REACTIONS (4)
  - Oxygen saturation decreased [Recovered/Resolved]
  - Somnolence [Recovered/Resolved]
  - Vomiting [Recovered/Resolved]
  - Wrong patient received product [Recovered/Resolved]

NARRATIVE: CASE EVENT DATE: 20230328
